FAERS Safety Report 9475012 (Version 28)
Quarter: 2016Q1

REPORT INFORMATION
  Report Type: Spontaneous
  Country: CA (occurrence: CA)
  Receive Date: 20130824
  Receipt Date: 20160316
  Transmission Date: 20160526
  Serious: Yes (Hospitalization, Congenital Anomaly)
  Sender: FDA-Public Use
  Company Number: CA-ROCHE-1265256

PATIENT
  Age: 74 Year
  Sex: Female

DRUGS (18)
  1. XOLAIR [Suspect]
     Active Substance: OMALIZUMAB
     Route: 058
     Dates: start: 20140716
  2. XOLAIR [Suspect]
     Active Substance: OMALIZUMAB
     Route: 058
     Dates: start: 20150715
  3. ALVESCO [Concomitant]
     Active Substance: CICLESONIDE
  4. XOLAIR [Suspect]
     Active Substance: OMALIZUMAB
     Route: 058
     Dates: start: 20140325
  5. XOLAIR [Suspect]
     Active Substance: OMALIZUMAB
     Route: 058
     Dates: start: 20150121
  6. ADVAIR HFA [Concomitant]
     Active Substance: FLUTICASONE PROPIONATE\SALMETEROL XINAFOATE
  7. VENTOLIN [Concomitant]
     Active Substance: ALBUTEROL SULFATE
     Route: 065
  8. XOLAIR [Suspect]
     Active Substance: OMALIZUMAB
     Route: 058
     Dates: start: 20131105
  9. PREDNISONE. [Concomitant]
     Active Substance: PREDNISONE
     Dosage: FOR 5 DAYS
     Route: 065
     Dates: start: 201407
  10. PREDNISONE. [Concomitant]
     Active Substance: PREDNISONE
     Route: 065
     Dates: start: 201211
  11. VENTOLIN [Concomitant]
     Active Substance: ALBUTEROL SULFATE
     Route: 065
  12. PREDNISONE. [Concomitant]
     Active Substance: PREDNISONE
     Dosage: FOR 8 DAYS
     Route: 065
  13. XOLAIR [Suspect]
     Active Substance: OMALIZUMAB
     Indication: ASTHMA
     Route: 058
     Dates: start: 20121025
  14. GUAIFENESIN. [Concomitant]
     Active Substance: GUAIFENESIN
  15. XOLAIR [Suspect]
     Active Substance: OMALIZUMAB
     Route: 058
     Dates: start: 20140128
  16. XOLAIR [Suspect]
     Active Substance: OMALIZUMAB
     Route: 058
     Dates: start: 20141126
  17. XOLAIR [Suspect]
     Active Substance: OMALIZUMAB
     Route: 058
     Dates: start: 20150715
  18. PREDNISONE. [Concomitant]
     Active Substance: PREDNISONE
     Route: 065
     Dates: start: 20140711

REACTIONS (15)
  - Asthma [Recovering/Resolving]
  - Heart valve incompetence [Unknown]
  - Pleural effusion [Unknown]
  - Body temperature decreased [Unknown]
  - Budd-Chiari syndrome [Recovered/Resolved with Sequelae]
  - Cardiac disorder [Recovered/Resolved]
  - Respiratory disorder [Unknown]
  - Wheezing [Unknown]
  - Lower respiratory tract infection [Unknown]
  - Nasopharyngitis [Unknown]
  - Intra-abdominal haemorrhage [Unknown]
  - Drug hypersensitivity [Unknown]
  - Pulmonary function test decreased [Unknown]
  - Heart rate increased [Unknown]
  - Blood disorder [Unknown]

NARRATIVE: CASE EVENT DATE: 201211
